FAERS Safety Report 6883676-9 (Version None)
Quarter: 2010Q3

REPORT INFORMATION
  Report Type: 
  Country: None (occurrence: None)
  Receive Date: 20100729
  Receipt Date: 20100720
  Transmission Date: 20110219
  Serious: Yes (Hospitalization)
  Sender: FDA-Public Use
  Company Number: A0867097A

PATIENT
  Age: 53 Year
  Sex: Male

DRUGS (5)
  1. AVANDIA [Suspect]
     Dosage: 8MG PER DAY
     Route: 048
     Dates: start: 20071201, end: 20090206
  2. HYDROCHLOROTHIAZIDE [Concomitant]
  3. SINGULAIR [Concomitant]
  4. PROAIR HFA [Concomitant]
  5. ADVAIR DISKUS 100/50 [Concomitant]

REACTIONS (2)
  - CARDIAC FAILURE CONGESTIVE [None]
  - MYOCARDIAL INFARCTION [None]
